FAERS Safety Report 24542494 (Version 1)
Quarter: 2024Q4

REPORT INFORMATION
  Report Type: Spontaneous
  Country: US (occurrence: US)
  Receive Date: 20241024
  Receipt Date: 20241024
  Transmission Date: 20250115
  Serious: Yes (Other)
  Sender: STRIDES
  Company Number: US-STRIDES ARCOLAB LIMITED-2024SP013638

PATIENT

DRUGS (15)
  1. CETIRIZINE [Suspect]
     Active Substance: CETIRIZINE HYDROCHLORIDE
     Indication: Eosinophilic cellulitis
     Dosage: 10 MILLIGRAM, QD
     Route: 065
  2. MONTELUKAST [Suspect]
     Active Substance: MONTELUKAST
     Indication: Eosinophilic cellulitis
     Dosage: UNK
     Route: 065
  3. PREDNISOLONE [Suspect]
     Active Substance: PREDNISOLONE
     Indication: Eosinophilic cellulitis
     Dosage: UNK, QD (40-60 MG)
     Route: 065
  4. PREDNISOLONE [Suspect]
     Active Substance: PREDNISOLONE
     Dosage: UNK (TAPERED)
     Route: 065
  5. MYCOPHENOLATE MOFETIL [Suspect]
     Active Substance: MYCOPHENOLATE MOFETIL
     Indication: Rash
     Dosage: UNK
     Route: 065
  6. CLARITHROMYCIN [Suspect]
     Active Substance: CLARITHROMYCIN
     Indication: Eosinophilic cellulitis
     Dosage: UNK
     Route: 065
  7. CLARITHROMYCIN [Suspect]
     Active Substance: CLARITHROMYCIN
     Indication: Evidence based treatment
     Dosage: UNK
     Route: 065
  8. CLARITHROMYCIN [Suspect]
     Active Substance: CLARITHROMYCIN
     Indication: Peptic ulcer
  9. AZITHROMYCIN [Suspect]
     Active Substance: AZITHROMYCIN
     Indication: Eosinophilic cellulitis
     Dosage: UNK
     Route: 065
  10. DOXYCYCLINE [Suspect]
     Active Substance: DOXYCYCLINE
     Indication: Eosinophilic cellulitis
     Dosage: UNK
     Route: 065
  11. CYCLOSPORINE [Suspect]
     Active Substance: CYCLOSPORINE
     Indication: Rash
     Dosage: UNK
     Route: 065
  12. CYCLOSPORINE [Suspect]
     Active Substance: CYCLOSPORINE
     Indication: Eosinophilic cellulitis
     Dosage: UNK
     Route: 065
  13. FEXOFENADINE [Suspect]
     Active Substance: FEXOFENADINE HYDROCHLORIDE
     Indication: Eosinophilic cellulitis
     Dosage: 360 MILLIGRAM, QD
     Route: 065
  14. FAMOTIDINE [Suspect]
     Active Substance: FAMOTIDINE
     Indication: Eosinophilic cellulitis
     Dosage: 40 MILLIGRAM, QD
     Route: 065
  15. OMALIZUMAB [Suspect]
     Active Substance: OMALIZUMAB
     Indication: Rash
     Dosage: UNK
     Route: 065

REACTIONS (4)
  - Peptic ulcer [Unknown]
  - Drug ineffective [Unknown]
  - Therapy partial responder [Unknown]
  - Off label use [Unknown]
